FAERS Safety Report 15279445 (Version 2)
Quarter: 2018Q4

REPORT INFORMATION
  Report Type: Spontaneous
  Country: US (occurrence: US)
  Receive Date: 20180815
  Receipt Date: 20180817
  Transmission Date: 20190204
  Serious: No
  Sender: FDA-Public Use
  Company Number: US-TEVA-2018-US-941330

PATIENT
  Sex: Female

DRUGS (2)
  1. CLONATAB-A [Suspect]
     Active Substance: CLONAZEPAM
  2. CLONATAB-A [Suspect]
     Active Substance: CLONAZEPAM
     Indication: ANXIETY
     Dates: start: 201807

REACTIONS (10)
  - Headache [Unknown]
  - Insomnia [Unknown]
  - Inappropriate schedule of product administration [Unknown]
  - Wrong technique in product usage process [Unknown]
  - Dizziness [Unknown]
  - Muscular weakness [Unknown]
  - Fatigue [Unknown]
  - Palpitations [Unknown]
  - Feeling abnormal [Unknown]
  - Tension [Unknown]

NARRATIVE: CASE EVENT DATE: 201807
